FAERS Safety Report 18586495 (Version 1)
Quarter: 2020Q4

REPORT INFORMATION
  Report Type: Spontaneous
  Country: ES (occurrence: ES)
  Receive Date: 20201207
  Receipt Date: 20201207
  Transmission Date: 20210114
  Serious: Yes (Hospitalization)
  Sender: FDA-Public Use
  Company Number: ES-TEVA-2020-ES-1854735

PATIENT
  Age: 70 Year
  Sex: Female

DRUGS (1)
  1. ATORVASTATINA RATIO 60 MG COMPRIMIDOS RECUBIERTOS CON PELICULA , 28 CO [Suspect]
     Active Substance: ATORVASTATIN CALCIUM
     Dates: start: 20200826, end: 2020

REACTIONS (1)
  - Abdominal pain upper [Recovered/Resolved]

NARRATIVE: CASE EVENT DATE: 20200918
